FAERS Safety Report 14106611 (Version 16)
Quarter: 2022Q3

REPORT INFORMATION
  Report Type: Report from Study
  Country: JP (occurrence: JP)
  Receive Date: 20171019
  Receipt Date: 20220810
  Transmission Date: 20221027
  Serious: Yes (Hospitalization)
  Sender: FDA-Public Use
  Company Number: PHJP2017JP031109

PATIENT
  Age: 16 Year
  Sex: Male
  Weight: 28.2 kg

DRUGS (49)
  1. ILARIS [Suspect]
     Active Substance: CANAKINUMAB
     Indication: Hyper IgD syndrome
     Dosage: 180 MG
     Route: 058
     Dates: start: 20170104
  2. ILARIS [Suspect]
     Active Substance: CANAKINUMAB
     Dosage: 180 MG
     Route: 058
     Dates: start: 20170202
  3. ILARIS [Suspect]
     Active Substance: CANAKINUMAB
     Dosage: 180 MG
     Route: 058
     Dates: start: 20170302
  4. ILARIS [Suspect]
     Active Substance: CANAKINUMAB
     Dosage: 170 MG, Q4W
     Route: 058
     Dates: start: 20170331
  5. ILARIS [Suspect]
     Active Substance: CANAKINUMAB
     Dosage: 170 MG, Q4W
     Route: 058
     Dates: start: 20170426
  6. ILARIS [Suspect]
     Active Substance: CANAKINUMAB
     Dosage: 170 MG, Q4W
     Route: 058
     Dates: start: 20170524
  7. ILARIS [Suspect]
     Active Substance: CANAKINUMAB
     Dosage: 170 MG, Q4W
     Route: 058
     Dates: start: 20170619
  8. ILARIS [Suspect]
     Active Substance: CANAKINUMAB
     Dosage: 170 MG, Q4W
     Route: 058
     Dates: start: 20170719
  9. ILARIS [Suspect]
     Active Substance: CANAKINUMAB
     Dosage: 170 MG, Q4W
     Route: 058
     Dates: start: 20170816
  10. ILARIS [Suspect]
     Active Substance: CANAKINUMAB
     Dosage: 170 MG, Q4W
     Route: 058
     Dates: start: 20170913
  11. ILARIS [Suspect]
     Active Substance: CANAKINUMAB
     Dosage: 170 MG, Q4W
     Route: 058
     Dates: start: 20171011
  12. ILARIS [Suspect]
     Active Substance: CANAKINUMAB
     Dosage: 170 MG, Q4W
     Route: 058
     Dates: start: 20171108
  13. ILARIS [Suspect]
     Active Substance: CANAKINUMAB
     Dosage: 170 MG, Q4W
     Route: 058
     Dates: start: 20171204
  14. ILARIS [Suspect]
     Active Substance: CANAKINUMAB
     Dosage: 170 MG, Q4W
     Route: 058
     Dates: start: 20180104
  15. ILARIS [Suspect]
     Active Substance: CANAKINUMAB
     Dosage: 170 MG, Q4W
     Route: 058
     Dates: start: 20180131
  16. ILARIS [Suspect]
     Active Substance: CANAKINUMAB
     Dosage: 170 MG, Q4W
     Route: 058
     Dates: start: 20180228
  17. ILARIS [Suspect]
     Active Substance: CANAKINUMAB
     Dosage: 170 MG, Q4W
     Route: 058
     Dates: start: 20180328
  18. ILARIS [Suspect]
     Active Substance: CANAKINUMAB
     Dosage: 170 MG, Q4W
     Route: 058
     Dates: start: 20180425
  19. ILARIS [Suspect]
     Active Substance: CANAKINUMAB
     Dosage: 170 MG, Q4W
     Route: 058
     Dates: start: 20180523
  20. ILARIS [Suspect]
     Active Substance: CANAKINUMAB
     Dosage: 170 MG, Q4W
     Route: 058
     Dates: start: 20180620
  21. ILARIS [Suspect]
     Active Substance: CANAKINUMAB
     Dosage: 170 MG, Q4W
     Route: 058
     Dates: start: 20180718
  22. ILARIS [Suspect]
     Active Substance: CANAKINUMAB
     Dosage: 170 MG, Q4W
     Route: 058
     Dates: start: 20180816
  23. ILARIS [Suspect]
     Active Substance: CANAKINUMAB
     Dosage: 171 MG, Q4W
     Route: 058
     Dates: start: 20180910
  24. ILARIS [Suspect]
     Active Substance: CANAKINUMAB
     Dosage: 191 MG, Q4W
     Route: 058
     Dates: start: 20181010
  25. ILARIS [Suspect]
     Active Substance: CANAKINUMAB
     Dosage: 191 MG, Q4W
     Route: 058
     Dates: start: 20181107
  26. ILARIS [Suspect]
     Active Substance: CANAKINUMAB
     Dosage: 191 MG, Q4W
     Route: 058
     Dates: start: 20181203
  27. ILARIS [Suspect]
     Active Substance: CANAKINUMAB
     Dosage: 191 MG, Q4W
     Route: 058
     Dates: start: 20190104
  28. ILARIS [Suspect]
     Active Substance: CANAKINUMAB
     Dosage: 191 MG, Q4W
     Route: 058
     Dates: start: 20190130
  29. ILARIS [Suspect]
     Active Substance: CANAKINUMAB
     Dosage: 191 MG, Q4W
     Route: 058
     Dates: start: 20190227
  30. ILARIS [Suspect]
     Active Substance: CANAKINUMAB
     Dosage: 191 MG, Q4W
     Route: 058
     Dates: start: 20190327
  31. PREDNISOLONE [Concomitant]
     Active Substance: PREDNISOLONE
     Indication: Osteoporosis
     Dosage: 3 MG, UNK
     Route: 048
  32. PREDNISOLONE [Concomitant]
     Active Substance: PREDNISOLONE
     Indication: Pharyngitis
     Dosage: 5 MG, UNK
     Route: 065
     Dates: start: 20170429, end: 20171025
  33. PREDNISOLONE [Concomitant]
     Active Substance: PREDNISOLONE
     Indication: Diarrhoea
     Dosage: 3 MG, UNK
     Route: 065
  34. PREDNISOLONE [Concomitant]
     Active Substance: PREDNISOLONE
     Indication: Hyper IgD syndrome
     Dosage: 5 MG, UNK
     Route: 065
     Dates: start: 20171201
  35. PREDNISOLONE [Concomitant]
     Active Substance: PREDNISOLONE
     Dosage: 3 MG, UNK
     Route: 065
  36. PREDNISOLONE [Concomitant]
     Active Substance: PREDNISOLONE
     Dosage: 10 MG, UNK
     Route: 065
     Dates: start: 20180310, end: 20180312
  37. PREDNISOLONE [Concomitant]
     Active Substance: PREDNISOLONE
     Dosage: 5 MG, UNK
     Route: 065
     Dates: start: 20180313, end: 20180317
  38. PREDNISOLONE [Concomitant]
     Active Substance: PREDNISOLONE
     Dosage: 3 MG, UNK
     Route: 065
  39. PREDNISOLONE [Concomitant]
     Active Substance: PREDNISOLONE
     Dosage: 5 MG, UNK
     Route: 048
     Dates: start: 20181106
  40. PREDNISOLONE [Concomitant]
     Active Substance: PREDNISOLONE
     Dosage: 10 MG, UNK
     Route: 065
     Dates: start: 20181106, end: 20181108
  41. PREDNISOLONE [Concomitant]
     Active Substance: PREDNISOLONE
     Dosage: 5 MG, UNK
     Route: 048
  42. PREDNISOLONE [Concomitant]
     Active Substance: PREDNISOLONE
     Dosage: 3 MG, UNK
     Route: 048
     Dates: start: 20181112
  43. PREDNISOLONE [Concomitant]
     Active Substance: PREDNISOLONE
     Dosage: 8 MG, UNK
     Route: 048
     Dates: start: 20181214
  44. PREDNISOLONE [Concomitant]
     Active Substance: PREDNISOLONE
     Dosage: 10 MG, UNK
     Route: 048
     Dates: start: 20181215, end: 20181216
  45. PREDNISOLONE [Concomitant]
     Active Substance: PREDNISOLONE
     Dosage: 5 MG, UNK
     Route: 048
     Dates: start: 20181219, end: 20181222
  46. PREDNISOLONE [Concomitant]
     Active Substance: PREDNISOLONE
     Dosage: 3 MG, UNK
     Route: 048
     Dates: start: 20181223
  47. SULFAMETHOXAZOLE\TRIMETHOPRIM [Concomitant]
     Active Substance: SULFAMETHOXAZOLE\TRIMETHOPRIM
     Indication: Product used for unknown indication
     Dosage: 1 G, UNK
     Route: 048
  48. MENATETRENONE [Concomitant]
     Active Substance: MENATETRENONE
     Indication: Osteoporosis
     Dosage: 1 DF, UNK
     Route: 048
  49. INFLUENZA VIRUS VACCINE [Concomitant]
     Active Substance: INFLUENZA VIRUS VACCINE
     Indication: Product used for unknown indication
     Dosage: UNK
     Route: 042
     Dates: start: 20190111

REACTIONS (35)
  - Pharyngitis [Recovered/Resolved]
  - Oropharyngeal pain [Recovered/Resolved]
  - Nasal congestion [Recovered/Resolved]
  - Pyrexia [Recovered/Resolved]
  - Pharyngeal erythema [Unknown]
  - Dysphagia [Unknown]
  - Pharyngitis [Recovered/Resolved]
  - Diarrhoea [Recovering/Resolving]
  - Rhinorrhoea [Unknown]
  - Pharyngitis [Recovered/Resolved]
  - Cough [Unknown]
  - Hyper IgD syndrome [Recovered/Resolved]
  - Pharyngitis [Recovered/Resolved]
  - Fatigue [Unknown]
  - Nasal congestion [Unknown]
  - Oropharyngeal pain [Recovered/Resolved]
  - Disease progression [Recovered/Resolved]
  - Nasopharyngitis [Recovered/Resolved]
  - Productive cough [Unknown]
  - Headache [Recovered/Resolved]
  - Faeces soft [Recovered/Resolved]
  - Back pain [Recovered/Resolved]
  - Diarrhoea [Recovered/Resolved]
  - Hyper IgD syndrome [Recovered/Resolved]
  - Diarrhoea [Recovered/Resolved]
  - Headache [Recovered/Resolved]
  - Abdominal pain [Recovered/Resolved]
  - Disease progression [Recovered/Resolved]
  - Conjunctivitis [Recovered/Resolved]
  - Conjunctival hyperaemia [Recovered/Resolved]
  - Abdominal pain [Recovering/Resolving]
  - Headache [Recovering/Resolving]
  - Stomatitis [Recovering/Resolving]
  - Abdominal pain [Recovered/Resolved]
  - Therapeutic response shortened [Unknown]

NARRATIVE: CASE EVENT DATE: 20170425
